FAERS Safety Report 9368880 (Version 1)
Quarter: 2013Q2

REPORT INFORMATION
  Report Type: Spontaneous
  Country: IT (occurrence: None)
  Receive Date: 20130621
  Receipt Date: 20130621
  Transmission Date: 20140414
  Serious: Yes (Hospitalization)
  Sender: FDA-Public Use
  Company Number: FK201302104

PATIENT
  Age: 64 Year
  Sex: Male
  Weight: 59 kg

DRUGS (6)
  1. ONDANSETRON [Suspect]
     Indication: PREMEDICATION
     Dosage: 8 MG, CYCLICAL, INTRAVENOUS (NOT OTHERWISE SPECIFIED)
     Route: 042
     Dates: start: 20121220, end: 20130426
  2. IRINOTECAN (MANUFACTURER UNKNOWN) (IRINOTECAN) (IRINOTECAN) [Suspect]
     Indication: COLON CANCER
     Dosage: 180, MG/MQ BODY SURFACE, INTRAVENOUS (NOT OTHERWISE SPECIFIED)
     Route: 042
     Dates: start: 20121220, end: 20130426
  3. AVASTIN [Suspect]
     Indication: COLON CANCER
     Dosage: 400 MG, INTRAVENOUS (NOT OTHERWISE SPECIFIED)
     Route: 042
     Dates: start: 20130222, end: 20130426
  4. ZANTAC (RANITIDINE HYDROCHLORIDE) [Concomitant]
  5. XELODA (CAPECITABINE) [Concomitant]
  6. DEXAMETHASONE PHOSPHATE (DEXAMETHASONE PHOSPHATE) [Concomitant]

REACTIONS (3)
  - Blood pressure inadequately controlled [None]
  - Subileus [None]
  - Hypertension [None]
